FAERS Safety Report 17286190 (Version 1)
Quarter: 2020Q1

REPORT INFORMATION
  Report Type: Spontaneous
  Country: US (occurrence: US)
  Receive Date: 20191230
  Receipt Date: 20191230
  Transmission Date: 20200409
  Serious: No
  Sender: FDA-Public Use
  Company Number: None

PATIENT
  Age: 10 Year
  Sex: Female

DRUGS (1)
  1. NORDITROPIN [Suspect]
     Active Substance: SOMATROPIN
     Route: 058
     Dates: start: 201808

REACTIONS (3)
  - Manufacturing product shipping issue [None]
  - Prescription drug used without a prescription [None]
  - Therapy cessation [None]

NARRATIVE: CASE EVENT DATE: 20191230
